FAERS Safety Report 11096193 (Version 1)
Quarter: 2015Q2

REPORT INFORMATION
  Report Type: Spontaneous
  Country: US (occurrence: None)
  Receive Date: 20150506
  Receipt Date: 20150506
  Transmission Date: 20150821
  Serious: Yes (Life-Threatening, Hospitalization)
  Sender: FDA-Public Use
  Company Number: None

PATIENT
  Age: 45 Year
  Sex: Female
  Weight: 92.99 kg

DRUGS (15)
  1. MELOXICAM. [Concomitant]
     Active Substance: MELOXICAM
  2. DULOXETINE HCL DR (GENERIC CYMBALTA) [Concomitant]
  3. CALCIUM [Concomitant]
     Active Substance: CALCIUM
  4. MUCINEX DM MAX MAXIMUM STRENGTH [Suspect]
     Active Substance: DEXTROMETHORPHAN HYDROBROMIDE\GUAIFENESIN
     Indication: AIRWAY SECRETION CLEARANCE THERAPY
     Dosage: 1 TABLET, TWICE DAILY, TAKEN BY MOUTH
     Route: 048
     Dates: start: 20150207, end: 20150211
  5. HYDROCODONE [Concomitant]
     Active Substance: HYDROCODONE
  6. GENERIC ZYRTEC [Concomitant]
  7. MUCINEX DM MAX MAXIMUM STRENGTH [Suspect]
     Active Substance: DEXTROMETHORPHAN HYDROBROMIDE\GUAIFENESIN
     Indication: ANTITUSSIVE THERAPY
     Dosage: 1 TABLET, TWICE DAILY, TAKEN BY MOUTH
     Route: 048
     Dates: start: 20150207, end: 20150211
  8. JUNEL FE 1/20 [Concomitant]
     Active Substance: ETHINYL ESTRADIOL\NORETHINDRONE ACETATE
  9. ALENDRONATE SODIUM. [Concomitant]
     Active Substance: ALENDRONATE SODIUM
  10. PRAMIPEXOLE [Concomitant]
     Active Substance: PRAMIPEXOLE
  11. MAGNESIUM [Concomitant]
     Active Substance: MAGNESIUM
  12. CLONAZEPAM. [Concomitant]
     Active Substance: CLONAZEPAM
  13. DAILY MULTI-VITAMIN [Concomitant]
  14. HEMATINIC-FOLIC ACID [Concomitant]
  15. VITAMIN E [Concomitant]
     Active Substance: .ALPHA.-TOCOPHEROL

REACTIONS (3)
  - Product quality issue [None]
  - Supraventricular tachycardia [None]
  - Drug interaction [None]

NARRATIVE: CASE EVENT DATE: 20150212
